FAERS Safety Report 12678534 (Version 2)
Quarter: 2016Q3

REPORT INFORMATION
  Report Type: Spontaneous
  Country: GB (occurrence: GB)
  Receive Date: 20160823
  Receipt Date: 20160922
  Transmission Date: 20161109
  Serious: Yes (Other)
  Sender: FDA-Public Use
  Company Number: PHHY2016GB113305

PATIENT

DRUGS (2)
  1. PERINDOPRIL ARGININE [Concomitant]
     Active Substance: PERINDOPRIL ARGININE
     Indication: PRODUCT USED FOR UNKNOWN INDICATION
     Route: 065
  2. AMLODIPINE [Suspect]
     Active Substance: AMLODIPINE BESYLATE
     Indication: HYPERTENSION
     Dosage: 10 MG, UNK
     Route: 048
     Dates: start: 20150622, end: 20160712

REACTIONS (6)
  - Trigger finger [Recovering/Resolving]
  - Musculoskeletal stiffness [Recovering/Resolving]
  - Joint swelling [Recovered/Resolved with Sequelae]
  - Peripheral swelling [Recovered/Resolved with Sequelae]
  - Arthralgia [Recovered/Resolved]
  - Muscle spasms [Recovered/Resolved with Sequelae]

NARRATIVE: CASE EVENT DATE: 20150713
